FAERS Safety Report 11102097 (Version 2)
Quarter: 2016Q2

REPORT INFORMATION
  Report Type: Spontaneous
  Country: US (occurrence: US)
  Receive Date: 20150511
  Receipt Date: 20160525
  Transmission Date: 20160815
  Serious: No
  Sender: FDA-Public Use
  Company Number: US-TEVA-557962USA

PATIENT
  Sex: Female

DRUGS (1)
  1. CLOPIDOGREL [Suspect]
     Active Substance: CLOPIDOGREL BISULFATE
     Route: 065

REACTIONS (2)
  - Product odour abnormal [Unknown]
  - Nausea [Unknown]

NARRATIVE: CASE EVENT DATE: 2015
